FAERS Safety Report 24585976 (Version 3)
Quarter: 2025Q2

REPORT INFORMATION
  Report Type: Report from Study
  Country: CH (occurrence: CH)
  Receive Date: 20241106
  Receipt Date: 20250507
  Transmission Date: 20250716
  Serious: Yes (Other)
  Sender: TRAVERE THERAPEUTICS
  Company Number: CH-Vifor (International) Inc.-VIT-2024-07920

PATIENT
  Age: 65 Year
  Sex: Female
  Weight: 50 kg

DRUGS (3)
  1. FILSPARI [Suspect]
     Active Substance: SPARSENTAN
     Indication: IgA nephropathy
     Dosage: 200 MG DOSAGE IS ACHIEVED BY DIVIDING THE 400 MG TABLET IN HALF
     Route: 048
  2. FILSPARI [Suspect]
     Active Substance: SPARSENTAN
     Dosage: 400 MG DOSAGE IS ACHIEVED BY DIVIDING THE 400 MG TABLET IN HALF
     Route: 048
     Dates: start: 20240727
  3. FILSPARI [Suspect]
     Active Substance: SPARSENTAN
     Dosage: 200 MG DOSAGE IS ACHIEVED BY DIVIDING THE 400 MG TABLET IN HALF
     Route: 048
     Dates: start: 2024

REACTIONS (11)
  - Hepatic enzyme increased [Unknown]
  - Blood pressure systolic increased [Recovered/Resolved]
  - Palpitations [Recovered/Resolved]
  - Feeling hot [Recovered/Resolved]
  - Oedema [Recovered/Resolved]
  - Chest discomfort [Unknown]
  - Varicose vein [Unknown]
  - Panic attack [Unknown]
  - Anxiety [Recovered/Resolved]
  - Oedema [Recovered/Resolved]
  - Wrong technique in product usage process [Unknown]

NARRATIVE: CASE EVENT DATE: 20240101
